FAERS Safety Report 10379861 (Version 1)
Quarter: 2014Q1

REPORT INFORMATION
  Report Type: Spontaneous
  Country: US (occurrence: None)
  Receive Date: 20140306
  Receipt Date: 20140306
  Transmission Date: 20141002
  Serious: Yes (Hospitalization)
  Sender: FDA-Public Use
  Company Number: 163-21880-13033448

PATIENT
  Age: 70 Year
  Sex: Male
  Weight: 92.53 kg

DRUGS (12)
  1. REVLIMID (LENALIDOMIDE) (10 MILLIGRAM, CAPSULES) [Suspect]
     Indication: PLASMA CELL MYELOMA
     Route: 048
     Dates: start: 20121120
  2. METOPROLOL [Concomitant]
  3. COUMADIN (WARFARIN SODIUM) [Concomitant]
  4. GLIPIZIDE [Concomitant]
  5. COLCHINE PROBENECID (COLBENEMID) [Concomitant]
  6. ASPIRIN (ACETYLSALICYLIC ACID) [Concomitant]
  7. METHADONE [Concomitant]
  8. SODIUM BICARBONATE [Concomitant]
  9. GABAPENTIN [Concomitant]
  10. ALLOPURINOL [Concomitant]
  11. NOVOLOG (INSULIN ASPART) [Concomitant]
  12. PRAVASTATIN [Concomitant]

REACTIONS (2)
  - Atrial fibrillation [None]
  - Hypotension [None]
